FAERS Safety Report 4482395-6 (Version None)
Quarter: 2004Q4

REPORT INFORMATION
  Report Type: 
  Country: None (occurrence: None)
  Receive Date: 20041022
  Receipt Date: 20040401
  Transmission Date: 20050328
  Serious: No
  Sender: FDA-Public Use
  Company Number: US-BRISTOL-MYERS SQUIBB COMPANY-12548988

PATIENT
  Age: 50 Year
  Sex: Female
  Weight: 120 kg

DRUGS (4)
  1. BUSPAR [Suspect]
     Indication: SLEEP APNOEA SYNDROME
     Dosage: 15 MG, ONE TABLET IN THE MORNING AND 3 TABLETS AT BEDTIME STARTING SOMETIME BEFORE THE 1990'S
     Route: 048
  2. SYNTHROID [Concomitant]
  3. LOTENSIN [Concomitant]
  4. ASPIRIN [Concomitant]
     Dosage: 162 MG ASPIRIN

REACTIONS (1)
  - SOMNOLENCE [None]
